FAERS Safety Report 6983245-6 (Version None)
Quarter: 2010Q3

REPORT INFORMATION
  Report Type: 
  Country: None (occurrence: None)
  Receive Date: 20100914
  Receipt Date: 20100708
  Transmission Date: 20110219
  Serious: Yes (Other)
  Sender: FDA-Public Use
  Company Number: US-PFIZER INC-2010086195

PATIENT
  Sex: Male
  Weight: 108.84 kg

DRUGS (10)
  1. LYRICA [Suspect]
     Indication: NERVE INJURY
     Dosage: 75 MG, 1X/DAY
     Route: 048
     Dates: start: 20100704, end: 20100707
  2. GLUCOTROL [Concomitant]
     Indication: TYPE 2 DIABETES MELLITUS
     Dosage: 10 MG, 2X/DAY
  3. GLUCOPHAGE XR [Concomitant]
     Indication: TYPE 2 DIABETES MELLITUS
     Dosage: 1000 MG, 2X/DAY
  4. ACTOS [Concomitant]
     Indication: TYPE 2 DIABETES MELLITUS
     Dosage: 45 MG, DAILY
  5. SITAGLIPTIN [Concomitant]
     Indication: TYPE 2 DIABETES MELLITUS
     Dosage: 100 MG, DAILY
  6. ACETYLSALICYLIC ACID [Concomitant]
     Dosage: 325 MG, DAILY
  7. DIOVAN HCT [Concomitant]
     Indication: HYPERTENSION
     Dosage: 320/325 MG, DAILY
  8. TOPROL-XL [Concomitant]
     Dosage: 200 MG, 2X/DAY
  9. FENOFIBRIC ACID [Concomitant]
     Dosage: 135 MG, DAILY
  10. CALCIUM [Concomitant]
     Dosage: 600 MG, 3X/DAY

REACTIONS (2)
  - MUSCLE SPASMS [None]
  - PAIN IN EXTREMITY [None]
